FAERS Safety Report 7544786-6 (Version None)
Quarter: 2011Q2

REPORT INFORMATION
  Report Type: 
  Country: None (occurrence: None)
  Receive Date: 20110614
  Receipt Date: 20090820
  Transmission Date: 20111010
  Serious: Yes (Other)
  Sender: FDA-Public Use
  Company Number: US-BAYER-200930362NA

PATIENT
  Age: 54 Year
  Sex: Female
  Weight: 86 kg

DRUGS (21)
  1. NOVOLOG [Concomitant]
     Dosage: SLIDING SCALE/THREE TIMES DAILY
     Route: 058
     Dates: start: 20050201, end: 20050203
  2. RED BLOOD CELLS [Concomitant]
     Dosage: 2 U, UNK
     Route: 042
     Dates: start: 20050207
  3. LIPITOR [Concomitant]
     Dosage: 20 MG, QD
     Route: 048
     Dates: start: 20050131, end: 20050204
  4. LASIX [Concomitant]
     Dosage: 40 MG, QD
     Route: 042
     Dates: start: 20050131, end: 20050201
  5. TRASYLOL [Suspect]
     Dosage: 100 ML LOADING DOSE FOLLOWED BY 25 ML/HOUR INFUSION
     Route: 042
     Dates: start: 20050207, end: 20050207
  6. COZAAR [Concomitant]
     Dosage: 50 MG, QD
     Route: 048
     Dates: start: 20050204, end: 20050205
  7. TYLENOL ES [Concomitant]
     Dosage: 2 TABS EVERY 4 HOURS AS NEEDED
     Route: 048
  8. ANCEF [Concomitant]
     Dosage: 1 G, ONCE
     Route: 042
     Dates: start: 20050207, end: 20050207
  9. CLINDAMYCIN [Concomitant]
     Dosage: 500 MG
     Dates: start: 20050207
  10. NEURONTIN [Concomitant]
     Dosage: 300 MG, TID
     Route: 048
  11. CALCIUM CHLORIDE [Concomitant]
     Dosage: 1 GRAM
     Route: 042
     Dates: start: 20050207
  12. CARDIZEM CD [Concomitant]
     Dosage: 120 MG, QD
     Route: 048
     Dates: start: 20050203
  13. ALBUMIN (HUMAN) [Concomitant]
     Dosage: 25 GRAMS
     Route: 042
     Dates: start: 20050207
  14. TRASYLOL [Suspect]
     Indication: CORONARY ARTERY BYPASS
     Dosage: 1 ML INITIAL TEST DOSE
     Route: 042
     Dates: start: 20050207, end: 20050207
  15. ACETYLSALICYLIC ACID SRT [Concomitant]
     Dosage: 81 MG, QD
     Route: 048
     Dates: start: 20050131
  16. REGULAR INSULIN [Concomitant]
     Dosage: 2 UNITS/X1
     Route: 058
     Dates: start: 20050205
  17. NEOSYNEPHRINE [Concomitant]
     Dosage: 400 MILLIEQUIVILANTS
     Route: 042
     Dates: start: 20050207
  18. GLYBURIDE [Concomitant]
     Dosage: 5 MG, BID
     Route: 048
  19. PROTONIX [Concomitant]
     Dosage: 40 MG, QD
     Route: 048
     Dates: start: 20050131
  20. AMICAR [Concomitant]
     Dosage: 10 GRAMS
     Route: 042
     Dates: start: 20050207
  21. HEPARIN [Concomitant]
     Dosage: 15,000 UNITS
     Route: 042
     Dates: start: 20050207

REACTIONS (12)
  - ANXIETY [None]
  - RENAL FAILURE [None]
  - RENAL INJURY [None]
  - MULTI-ORGAN FAILURE [None]
  - ANHEDONIA [None]
  - INJURY [None]
  - EMOTIONAL DISTRESS [None]
  - FEAR [None]
  - STRESS [None]
  - PAIN [None]
  - UNEVALUABLE EVENT [None]
  - RENAL IMPAIRMENT [None]
